FAERS Safety Report 10230587 (Version 8)
Quarter: 2016Q1

REPORT INFORMATION
  Report Type: Report from Study
  Country: US (occurrence: US)
  Receive Date: 20140611
  Receipt Date: 20160226
  Transmission Date: 20160525
  Serious: Yes (Hospitalization)
  Sender: FDA-Public Use
  Company Number: US-SA-2014SA075684

PATIENT
  Age: 58 Year
  Sex: Male

DRUGS (3)
  1. AUBAGIO [Suspect]
     Active Substance: TERIFLUNOMIDE
     Indication: MULTIPLE SCLEROSIS
     Route: 048
     Dates: start: 20140502
  2. AUBAGIO [Suspect]
     Active Substance: TERIFLUNOMIDE
     Indication: MULTIPLE SCLEROSIS
     Route: 048
     Dates: start: 20140601
  3. AUBAGIO [Suspect]
     Active Substance: TERIFLUNOMIDE
     Indication: MULTIPLE SCLEROSIS
     Route: 048

REACTIONS (12)
  - Fall [Unknown]
  - Vomiting [Recovered/Resolved]
  - Stress [Not Recovered/Not Resolved]
  - Dehydration [Recovering/Resolving]
  - Nodule [Unknown]
  - Gastrointestinal disorder [Unknown]
  - Headache [Unknown]
  - Restless legs syndrome [Unknown]
  - Balance disorder [Unknown]
  - Drug dose omission [Unknown]
  - Tremor [Unknown]
  - Diarrhoea [Recovered/Resolved]

NARRATIVE: CASE EVENT DATE: 20140601
